FAERS Safety Report 9880581 (Version 1)
Quarter: 2014Q1

REPORT INFORMATION
  Report Type: Spontaneous
  Country: FR (occurrence: None)
  Receive Date: 20140205
  Receipt Date: 20140205
  Transmission Date: 20141002
  Serious: Yes (Hospitalization)
  Sender: FDA-Public Use
  Company Number: 7264168

PATIENT
  Age: 87 Year
  Sex: Male

DRUGS (8)
  1. LEVOTHYROX [Suspect]
     Indication: HYPOTHYROIDISM
     Dosage: 0.5 DF (0.5, DF,-2)
     Route: 048
     Dates: start: 20131016
  2. COUMADIN [Suspect]
     Indication: ATRIAL FIBRILLATION
     Dosage: 1 DF, 1 IN 1 D
     Route: 048
     Dates: start: 20131015, end: 20131027
  3. TRANSIPEG [Concomitant]
  4. BISOPROLOL [Concomitant]
  5. ATROVENT [Concomitant]
  6. BRICANYL [Concomitant]
  7. LANTUS [Concomitant]
  8. LASILIX [Concomitant]

REACTIONS (7)
  - Gastrointestinal haemorrhage [None]
  - Melaena [None]
  - Drug interaction [None]
  - Gastric ulcer [None]
  - Duodenal ulcer [None]
  - Colon cancer [None]
  - Oesophageal varices haemorrhage [None]
